FAERS Safety Report 17285530 (Version 2)
Quarter: 2020Q1

REPORT INFORMATION
  Report Type: Not Available
  Country: US (occurrence: US)
  Receive Date: 20200117
  Receipt Date: 20200306
  Transmission Date: 20200409
  Serious: No
  Sender: FDA-Public Use
  Company Number: US-NEUROCRINE BIOSCIENCES INC.-2020NBI00109

PATIENT
  Sex: Male

DRUGS (3)
  1. INGREZZA [Suspect]
     Active Substance: VALBENAZINE
     Indication: TARDIVE DYSKINESIA
     Dosage: TAKING TWO OF 40 MG DAILY
     Route: 048
     Dates: start: 20190222
  2. INGREZZA [Suspect]
     Active Substance: VALBENAZINE
     Route: 048
  3. LAMOTRIGINE. [Suspect]
     Active Substance: LAMOTRIGINE
     Indication: PRODUCT USED FOR UNKNOWN INDICATION

REACTIONS (9)
  - Fatigue [Unknown]
  - Asthenia [Unknown]
  - Weight decreased [Recovered/Resolved]
  - Fall [Unknown]
  - Depressed mood [Unknown]
  - Decreased appetite [Unknown]
  - Parkinsonism [Unknown]
  - Drooling [Unknown]
  - Off label use [Unknown]
